FAERS Safety Report 5618541-8 (Version None)
Quarter: 2008Q1

REPORT INFORMATION
  Report Type: 
  Country: None (occurrence: None)
  Receive Date: 20080204
  Receipt Date: 20080129
  Transmission Date: 20080703
  Serious: Yes (Other)
  Sender: FDA-Public Use
  Company Number: 163-20785-07121092

PATIENT
  Age: 60 Year
  Sex: Male

DRUGS (5)
  1. THALOMID [Suspect]
     Indication: MULTIPLE MYELOMA
     Dosage: 100 MG, DAILY, ORAL; 100-150MG, DAILY, ORAL; 100-200MG, DAILY, ORAL
     Route: 048
     Dates: start: 20030703, end: 20031201
  2. THALOMID [Suspect]
     Indication: MULTIPLE MYELOMA
     Dosage: 100 MG, DAILY, ORAL; 100-150MG, DAILY, ORAL; 100-200MG, DAILY, ORAL
     Route: 048
     Dates: start: 20041201, end: 20060401
  3. THALOMID [Suspect]
     Indication: MULTIPLE MYELOMA
     Dosage: 100 MG, DAILY, ORAL; 100-150MG, DAILY, ORAL; 100-200MG, DAILY, ORAL
     Route: 048
     Dates: start: 20060406, end: 20071024
  4. WARFARIN SODIUM [Concomitant]
  5. DEXAMETHASONE TAB [Concomitant]

REACTIONS (2)
  - HYPOAESTHESIA [None]
  - OSTEONECROSIS [None]
